FAERS Safety Report 22089734 (Version 9)
Quarter: 2023Q2

REPORT INFORMATION
  Report Type: Report from Study
  Country: FR (occurrence: None)
  Receive Date: 20230313
  Receipt Date: 20230622
  Transmission Date: 20230721
  Serious: Yes (Hospitalization)
  Sender: FDA-Public Use
  Company Number: FR-Eisai Medical Research-EC-2023-135906

PATIENT
  Age: 67 Year
  Sex: Male
  Weight: 62 kg

DRUGS (12)
  1. LENVATINIB [Suspect]
     Active Substance: LENVATINIB
     Indication: Metastatic malignant melanoma
     Route: 048
     Dates: start: 20221028, end: 20230301
  2. QUAVONLIMAB [Suspect]
     Active Substance: QUAVONLIMAB
     Indication: Metastatic malignant melanoma
     Dosage: MK-1308 25 MG (+) MK-3475 400 MG
     Route: 042
     Dates: start: 20221028, end: 20221209
  3. CANDESARTAN [Concomitant]
     Active Substance: CANDESARTAN
     Dates: start: 20221121, end: 20230302
  4. AMLODIPINE [Concomitant]
     Active Substance: AMLODIPINE BESYLATE
     Dates: start: 20221121, end: 20230302
  5. PANTOPRAZOLE [Concomitant]
     Active Substance: PANTOPRAZOLE
     Dates: start: 20221208, end: 20230305
  6. ASPIRIN DL-LYSINE [Concomitant]
     Active Substance: ASPIRIN DL-LYSINE
     Dates: start: 20221230
  7. XYLOCAINE [Concomitant]
     Active Substance: LIDOCAINE HYDROCHLORIDE
     Dates: start: 20221230
  8. CLINUTREN HP ENERGY [Concomitant]
     Dates: start: 20230121
  9. LEVOTHYROXINE [Concomitant]
     Active Substance: LEVOTHYROXINE
     Dates: start: 20230121, end: 20230312
  10. IMODIUM [Concomitant]
     Active Substance: LOPERAMIDE HYDROCHLORIDE
     Dates: start: 20221231, end: 20230303
  11. ACETAMINOPHEN [Concomitant]
     Active Substance: ACETAMINOPHEN
     Dates: start: 20221231, end: 20230303
  12. PEMBROLIZUMAB [Suspect]
     Active Substance: PEMBROLIZUMAB
     Dates: start: 20221028

REACTIONS (2)
  - Duodenitis [Recovered/Resolved]
  - Colitis [Recovered/Resolved]

NARRATIVE: CASE EVENT DATE: 20230210
